FAERS Safety Report 7736129-X (Version None)
Quarter: 2011Q3

REPORT INFORMATION
  Report Type: 
  Country: None (occurrence: None)
  Receive Date: 20110908
  Receipt Date: 20110829
  Transmission Date: 20111222
  Serious: Yes (Hospitalization, Other)
  Sender: FDA-Public Use
  Company Number: CH-JNJFOC-20110808356

PATIENT
  Sex: Female
  Weight: 57 kg

DRUGS (5)
  1. DIPIPERON [Suspect]
     Indication: BIPOLAR DISORDER
     Route: 048
     Dates: start: 20110607, end: 20110816
  2. ESCITALOPRAM [Concomitant]
     Indication: BIPOLAR DISORDER
     Route: 048
     Dates: start: 20110706
  3. ALL OTHER THERAPEUTIC PRODUCTS [Concomitant]
     Indication: SLEEP DISORDER
     Route: 048
     Dates: start: 20110614, end: 20110816
  4. ANTABUSE [Concomitant]
     Indication: ALCOHOLISM
     Dosage: SINCE YEARS
     Route: 048
  5. INVEGA [Suspect]
     Indication: BIPOLAR DISORDER
     Route: 048
     Dates: start: 20110509, end: 20110816

REACTIONS (3)
  - DYSPHAGIA [None]
  - SPEECH DISORDER [None]
  - CEREBRAL INFARCTION [None]
